FAERS Safety Report 5797332-1 (Version None)
Quarter: 2008Q2

REPORT INFORMATION
  Report Type: 
  Country: None (occurrence: None)
  Receive Date: 20080627
  Receipt Date: 20080613
  Transmission Date: 20081010
  Serious: Yes (Other)
  Sender: FDA-Public Use
  Company Number: JPI-P-003926

PATIENT
  Age: 72 Year
  Sex: Male

DRUGS (4)
  1. LUVOX [Suspect]
     Indication: DRUG USE FOR UNKNOWN INDICATION
     Dosage: (50 MG, 1 D), ORAL
     Route: 048
     Dates: start: 20080501, end: 20080602
  2. FAMOTIDINE [Suspect]
     Indication: DRUG USE FOR UNKNOWN INDICATION
     Dosage: (20 MG, 1 D), ORAL
     Route: 048
     Dates: start: 20080512, end: 20080602
  3. ZOLPIDEM TARTRATE [Suspect]
     Indication: DRUG USE FOR UNKNOWN INDICATION
     Dosage: (5 MG, 1 D), ORAL
     Route: 048
     Dates: start: 20080429, end: 20080602
  4. CLOPIDOGREL BISULFATE [Suspect]
     Indication: DRUG USE FOR UNKNOWN INDICATION
     Dosage: (75 MG, 1 D), ORAL
     Route: 048
     Dates: start: 20080410, end: 20080602

REACTIONS (2)
  - NEUTROPHIL COUNT DECREASED [None]
  - WHITE BLOOD CELL COUNT DECREASED [None]
